FAERS Safety Report 4499299-5 (Version None)
Quarter: 2004Q3

REPORT INFORMATION
  Report Type: 
  Country: None (occurrence: None)
  Receive Date: 20040928
  Receipt Date: 20040728
  Transmission Date: 20050211
  Serious: No
  Sender: FDA-Public Use
  Company Number: 04P-163-0268288-00

PATIENT
  Age: 47 Year
  Sex: Female
  Weight: 74.8435 kg

DRUGS (7)
  1. HUMIRA [Suspect]
     Indication: RHEUMATOID ARTHRITIS
     Dosage: 1 IN 1 WK, SUBCUTANEOUS  : 1 IN 2 WK, SUBCUTANEOUS
     Route: 058
     Dates: start: 20030101, end: 20040701
  2. HUMIRA [Suspect]
     Indication: RHEUMATOID ARTHRITIS
     Dosage: 1 IN 1 WK, SUBCUTANEOUS  : 1 IN 2 WK, SUBCUTANEOUS
     Route: 058
     Dates: start: 20040701
  3. PREDNISONE [Concomitant]
  4. METHOTREXATE SODIUM [Concomitant]
  5. NABUMETONE [Concomitant]
  6. VICODIN [Concomitant]
  7. ORPHENADRINE [Concomitant]

REACTIONS (2)
  - INJECTION SITE BURNING [None]
  - UNDERDOSE [None]
